FAERS Safety Report 18430426 (Version 2)
Quarter: 2020Q4

REPORT INFORMATION
  Report Type: Spontaneous
  Country: US (occurrence: US)
  Receive Date: 20201027
  Receipt Date: 20201216
  Transmission Date: 20210114
  Serious: No
  Sender: FDA-Public Use
  Company Number: US-SA-2020SA291935

PATIENT

DRUGS (3)
  1. DUPIXENT [Suspect]
     Active Substance: DUPILUMAB
     Dosage: 300 MG, QOW
     Route: 058
     Dates: start: 2020
  2. VASELINE INTENSIVE CARE [PARAFFIN] [Concomitant]
  3. DUPIXENT [Suspect]
     Active Substance: DUPILUMAB
     Indication: DERMATITIS ATOPIC
     Dosage: 600 MG, 1X
     Route: 058
     Dates: start: 20201013, end: 20201013

REACTIONS (7)
  - Skin fissures [Unknown]
  - Dry eye [Unknown]
  - Eye pruritus [Unknown]
  - Periorbital swelling [Unknown]
  - Dry skin [Unknown]
  - Skin exfoliation [Unknown]
  - Eyelid margin crusting [Unknown]

NARRATIVE: CASE EVENT DATE: 202010
